FAERS Safety Report 7182790-0 (Version None)
Quarter: 2010Q4

REPORT INFORMATION
  Report Type: 
  Country: None (occurrence: None)
  Receive Date: 20101221
  Receipt Date: 20100820
  Transmission Date: 20110411
  Serious: No
  Sender: FDA-Public Use
  Company Number: US-AMGEN-KDL413088

PATIENT

DRUGS (2)
  1. ENBREL [Suspect]
     Indication: PSORIASIS
     Dosage: 50 MG, 2 TIMES/WK
     Route: 058
     Dates: start: 20081226
  2. ROSUVASTATIN CALCIUM [Concomitant]

REACTIONS (5)
  - BRONCHITIS [None]
  - FATIGUE [None]
  - HAEMOGLOBIN INCREASED [None]
  - HYPERSOMNIA [None]
  - VITAMIN B12 DEFICIENCY [None]
